FAERS Safety Report 7381430-5 (Version None)
Quarter: 2011Q1

REPORT INFORMATION
  Report Type: 
  Country: None (occurrence: None)
  Receive Date: 20110329
  Receipt Date: 20110325
  Transmission Date: 20110831
  Serious: Yes (Death)
  Sender: FDA-Public Use
  Company Number: DE-ROCHE-752293

PATIENT
  Sex: Male
  Weight: 103 kg

DRUGS (32)
  1. EMBOLEX [Concomitant]
     Indication: THROMBOSIS PROPHYLAXIS
     Route: 042
     Dates: start: 20101221, end: 20101231
  2. ESMERON [Concomitant]
     Route: 042
     Dates: start: 20101221, end: 20101221
  3. EPIDURAL FENTANYL [Concomitant]
     Route: 042
     Dates: start: 20101221, end: 20101221
  4. HES [Concomitant]
     Route: 042
     Dates: start: 20101221, end: 20101221
  5. VOMEX A [Concomitant]
     Indication: NAUSEA
     Route: 042
     Dates: start: 20101222, end: 20101222
  6. OMEPRAZOLE [Concomitant]
     Route: 048
     Dates: start: 20101221, end: 20101221
  7. NAROPIN [Concomitant]
     Route: 042
     Dates: start: 20101221, end: 20101221
  8. DORMICUM [Concomitant]
     Indication: SEDATION
     Route: 048
     Dates: start: 20101221, end: 20101221
  9. QUANTALAN [Concomitant]
     Dosage: ONE TIME IN MORNING AND ONE TIME IN EVENING FOR TWO DAYS.
     Route: 048
     Dates: start: 20101229, end: 20101230
  10. TRAPANAL [Concomitant]
     Route: 042
     Dates: start: 20101221, end: 20101221
  11. DESFLURANE [Concomitant]
     Route: 055
     Dates: start: 20101221, end: 20101221
  12. OMEPRAZOLE [Concomitant]
     Route: 048
     Dates: start: 20101123, end: 20101123
  13. PANTOZOL [Concomitant]
     Indication: PAIN PROPHYLAXIS
     Route: 048
     Dates: start: 20101222, end: 20101231
  14. JONOSTERIL [Concomitant]
     Route: 042
     Dates: start: 20101221, end: 20101224
  15. DIPIDOLOR [Concomitant]
     Route: 042
     Dates: start: 20101221, end: 20101221
  16. CLONIDINE [Concomitant]
     Indication: HYPERTENSION
     Route: 042
     Dates: start: 20101221, end: 20101221
  17. CLONT [Concomitant]
     Route: 042
     Dates: start: 20101221, end: 20101221
  18. CAPECITABINE [Suspect]
     Indication: RECTAL CANCER
     Dosage: RECENT DOSE OF ADMINISTRATION WAS ON 24 NOVEMBER 2011.
     Route: 048
     Dates: start: 20101014
  19. NOCTAMID [Concomitant]
     Indication: SLEEP DISORDER
     Route: 048
     Dates: start: 20101226, end: 20101231
  20. PERFALGAN [Concomitant]
     Route: 042
     Dates: start: 20101223, end: 20101224
  21. FUROSEMID [Concomitant]
     Route: 042
     Dates: start: 20101222, end: 20101222
  22. FENTANYL [Concomitant]
     Route: 042
     Dates: start: 20101221, end: 20101221
  23. CEFAZOLIN SODIUM [Concomitant]
     Route: 042
     Dates: start: 20101221, end: 20101221
  24. GLUKOS [Concomitant]
     Route: 042
     Dates: start: 20101222, end: 20101224
  25. OMEPRAZOLE [Concomitant]
     Route: 048
     Dates: start: 20101102, end: 20101103
  26. VOLTAREN [Concomitant]
     Route: 048
     Dates: start: 20101224, end: 20101231
  27. FUROSEMID [Concomitant]
     Route: 042
     Dates: start: 20101221, end: 20101221
  28. AKRINOR [Concomitant]
     Route: 042
     Dates: start: 20101221, end: 20101221
  29. OXALIPLATIN [Suspect]
     Indication: RECTAL CANCER
     Route: 042
  30. OMEPRAZOLE [Concomitant]
     Route: 048
     Dates: start: 20101018, end: 20101019
  31. NAROPIN [Concomitant]
     Route: 042
     Dates: start: 20101221, end: 20101221
  32. SODIUM CHLORIDE [Concomitant]
     Route: 042
     Dates: start: 20101222, end: 20101222

REACTIONS (1)
  - DEATH [None]
